FAERS Safety Report 25479000 (Version 1)
Quarter: 2025Q2

REPORT INFORMATION
  Report Type: Spontaneous
  Country: US (occurrence: None)
  Receive Date: 20250624
  Receipt Date: 20250624
  Transmission Date: 20250717
  Serious: Yes (Life-Threatening, Disabling, Other)
  Sender: FDA-CTU
  Company Number: None

PATIENT
  Age: 68 Year
  Sex: Female
  Weight: 67.5 kg

DRUGS (12)
  1. VENLAFAXINE [Suspect]
     Active Substance: VENLAFAXINE HYDROCHLORIDE
     Indication: Obsessive-compulsive disorder
     Dates: start: 19970101, end: 20120801
  2. GABAPENTIN [Concomitant]
     Active Substance: GABAPENTIN
  3. LAMICTAL [Concomitant]
     Active Substance: LAMOTRIGINE
  4. PRAZOSIN [Concomitant]
     Active Substance: PRAZOSIN
  5. METFORMIN [Concomitant]
     Active Substance: METFORMIN HYDROCHLORIDE
  6. PROPRANOLOL [Concomitant]
     Active Substance: PROPRANOLOL HYDROCHLORIDE
  7. LEVOTHROID [Concomitant]
     Active Substance: LEVOTHYROXINE SODIUM
  8. Omega-3 with Fish Oil [Concomitant]
  9. VITAMIN D3 [Concomitant]
     Active Substance: CHOLECALCIFEROL
  10. VITAMINS [Concomitant]
     Active Substance: VITAMINS
  11. MELATONIN [Concomitant]
     Active Substance: MELATONIN
  12. IRON [Concomitant]
     Active Substance: IRON

REACTIONS (15)
  - Panic attack [None]
  - Anxiety [None]
  - Emotional distress [None]
  - Acute stress disorder [None]
  - Drug tolerance [None]
  - Memory impairment [None]
  - Palpitations [None]
  - Musculoskeletal discomfort [None]
  - Pain [None]
  - Brain injury [None]
  - Blunted affect [None]
  - Decreased interest [None]
  - Anhedonia [None]
  - Suicidal ideation [None]
  - Drug withdrawal syndrome [None]

NARRATIVE: CASE EVENT DATE: 20120801
